FAERS Safety Report 4409780-2 (Version None)
Quarter: 2004Q3

REPORT INFORMATION
  Report Type: 
  Country: None (occurrence: None)
  Receive Date: 20040723
  Receipt Date: 20040719
  Transmission Date: 20050211
  Serious: Yes (Other)
  Sender: FDA-Public Use
  Company Number: C-04-0042

PATIENT
  Age: 37 Year
  Sex: Female
  Weight: 63.5036 kg

DRUGS (1)
  1. LIDOCAINE HYDROCHLORIDE [Suspect]
     Indication: PHARYNGOLARYNGEAL PAIN
     Dosage: SWISH AND SPIT EVERY 3 HOURS.
     Dates: start: 20040628

REACTIONS (1)
  - DRUG INEFFECTIVE [None]
